FAERS Safety Report 7995216-1 (Version None)
Quarter: 2011Q4

REPORT INFORMATION
  Report Type: 
  Country: None (occurrence: None)
  Receive Date: 20111220
  Receipt Date: 20111214
  Transmission Date: 20120403
  Serious: No
  Sender: FDA-Public Use
  Company Number: CN-CTI_01422_2011

PATIENT
  Age: 22 Month
  Sex: Female

DRUGS (4)
  1. CEFDITOREN PIVOXIL [Suspect]
     Indication: TONSILLITIS
     Route: 048
     Dates: start: 20111203, end: 20111207
  2. CEFACLOR [Suspect]
     Indication: TONSILLITIS
     Route: 048
     Dates: start: 20111203, end: 20111207
  3. VITAMIN C POWDER [Concomitant]
     Dosage: 1 G + 5% GLUCOSE 250 ML
     Route: 041
     Dates: start: 20111203, end: 20111206
  4. CHILDREN'S IBUPROFEN [Concomitant]
     Route: 048
     Dates: start: 20111203, end: 20111206

REACTIONS (5)
  - NOSOCOMIAL INFECTION [None]
  - PYREXIA [None]
  - VOMITING [None]
  - GASTROENTERITIS ROTAVIRUS [None]
  - DIARRHOEA [None]
